FAERS Safety Report 8357938-2 (Version None)
Quarter: 2012Q2

REPORT INFORMATION
  Report Type: 
  Country: None (occurrence: None)
  Receive Date: 20120511
  Receipt Date: 20120430
  Transmission Date: 20120825
  Serious: Yes (Hospitalization, Other)
  Sender: FDA-Public Use
  Company Number: AUR-APL-2012-02077

PATIENT
  Age: 34 Year
  Sex: Male

DRUGS (1)
  1. TRIMETHOPRIM + SULFAMETHOXAZOLE [Suspect]
     Indication: PILONIDAL CYST

REACTIONS (8)
  - DIZZINESS [None]
  - RESPIRATORY RATE INCREASED [None]
  - PYREXIA [None]
  - SEPSIS [None]
  - DRUG HYPERSENSITIVITY [None]
  - HEART RATE INCREASED [None]
  - RASH ERYTHEMATOUS [None]
  - SWELLING FACE [None]
